FAERS Safety Report 4268478-4 (Version None)
Quarter: 2004Q1

REPORT INFORMATION
  Report Type: 
  Country: None (occurrence: None)
  Receive Date: 20040108
  Receipt Date: 20031223
  Transmission Date: 20041129
  Serious: Yes (Hospitalization)
  Sender: FDA-Public Use
  Company Number: 184855

PATIENT
  Age: 42 Year
  Sex: Female

DRUGS (5)
  1. AVONEX [Suspect]
     Indication: MULTIPLE SCLEROSIS
     Dosage: 30 MCG QW IM
     Route: 030
     Dates: start: 20010827
  2. KEPPRA [Concomitant]
  3. CELEBREX [Concomitant]
  4. AMITRIPTYLINE HCL [Concomitant]
  5. MULTI-VITAMINS [Concomitant]

REACTIONS (6)
  - CERVICAL SPINE FLATTENING [None]
  - DEPRESSION [None]
  - DIZZINESS [None]
  - INTERVERTEBRAL DISC PROTRUSION [None]
  - MIGRAINE [None]
  - SIMPLE PARTIAL SEIZURES [None]
